FAERS Safety Report 21965401 (Version 1)
Quarter: 2023Q1

REPORT INFORMATION
  Report Type: Report from Study
  Country: BR (occurrence: BR)
  Receive Date: 20230208
  Receipt Date: 20230208
  Transmission Date: 20230418
  Serious: Yes (Disabling, Other)
  Sender: FDA-Public Use
  Company Number: BR-CELLTRION INC.-2022BR021540

PATIENT

DRUGS (1)
  1. INFLIXIMAB [Suspect]
     Active Substance: INFLIXIMAB
     Indication: Psoriatic arthropathy
     Dosage: 5 AMPOULES EVERY 8 WEEKS
     Route: 042
     Dates: start: 20220901, end: 20221215

REACTIONS (9)
  - Bedridden [Unknown]
  - Joint swelling [Unknown]
  - Skin exfoliation [Unknown]
  - Blister infected [Unknown]
  - Pruritus [Unknown]
  - Pain [Unknown]
  - Therapeutic response shortened [Unknown]
  - Therapy interrupted [Unknown]
  - Product storage error [Unknown]

NARRATIVE: CASE EVENT DATE: 20221229
